FAERS Safety Report 17717176 (Version 2)
Quarter: 2020Q2

REPORT INFORMATION
  Report Type: Other
  Country: GB (occurrence: GB)
  Receive Date: 20200428
  Receipt Date: 20200528
  Transmission Date: 20200714
  Serious: Yes (Life-Threatening, Hospitalization, Disabling)
  Sender: FDA-Public Use
  Company Number: GB-EMCURE PHARMACEUTICALS LTD-2020-EPL-000518

PATIENT
  Age: 69 Year
  Sex: Male
  Weight: 96 kg

DRUGS (6)
  1. LEVOTHYROXINE. [Concomitant]
     Active Substance: LEVOTHYROXINE
     Dosage: 150 MICROGRAM, DAILY
  2. ALLOPURINOL. [Concomitant]
     Active Substance: ALLOPURINOL
     Dosage: 25 MILLIGRAM, DAILY
  3. NIFEDIPINE. [Suspect]
     Active Substance: NIFEDIPINE
     Dosage: 60 MILLIGRAM, DAILY, (TITRATING UP FROM 20MG/DAY TO 60MG/DAY EVERY TWO WEEKS)
     Route: 048
     Dates: start: 20191224, end: 20200118
  4. NIFEDIPINE. [Suspect]
     Active Substance: NIFEDIPINE
     Indication: HYPERTENSION
     Dosage: 20 MILLIGRAM, DAILY (TITRATING UP FROM 20MG/DAY TO 60MG/DAY EVERY TWO WEEKS)
     Route: 048
     Dates: start: 20191206
  5. NIFEDIPINE. [Suspect]
     Active Substance: NIFEDIPINE
     Dosage: 40 MILLIGRAM, DOSE INCREASED
     Dates: start: 20191215
  6. NIFEDIPINE. [Suspect]
     Active Substance: NIFEDIPINE
     Dosage: 80 MILLIGRAM
     Dates: start: 20200102

REACTIONS (13)
  - Drug ineffective [Unknown]
  - Pain in extremity [Recovered/Resolved]
  - Oedema peripheral [Recovered/Resolved]
  - Muscle swelling [Recovered/Resolved]
  - Muscle spasms [Recovered/Resolved]
  - Diaphragmalgia [Recovered/Resolved]
  - Renal pain [Recovered/Resolved]
  - Erythema [Recovered/Resolved]
  - Hypoaesthesia [Recovered/Resolved]
  - Deep vein thrombosis [Recovering/Resolving]
  - Pain [Recovered/Resolved]
  - Gait disturbance [Recovered/Resolved]
  - Chest pain [Recovered/Resolved]

NARRATIVE: CASE EVENT DATE: 20200109
